FAERS Safety Report 7276355-X (Version None)
Quarter: 2011Q1

REPORT INFORMATION
  Report Type: 
  Country: None (occurrence: None)
  Receive Date: 20110204
  Receipt Date: 20110128
  Transmission Date: 20110831
  Serious: Yes (Hospitalization, Other)
  Sender: FDA-Public Use
  Company Number: GB-US-EMD SERONO, INC.-7022850

PATIENT
  Sex: Female

DRUGS (1)
  1. REBIF [Suspect]
     Indication: PRODUCT USED FOR UNKNOWN INDICATION
     Dates: start: 20100301, end: 20101008

REACTIONS (8)
  - OVARIAN CYST [None]
  - PYELONEPHRITIS [None]
  - INCONTINENCE [None]
  - FALLOPIAN TUBE ABSCESS [None]
  - SYNCOPE [None]
  - BACTERIAL INFECTION [None]
  - MOBILITY DECREASED [None]
  - PYREXIA [None]
